FAERS Safety Report 12755501 (Version 1)
Quarter: 2016Q3

REPORT INFORMATION
  Report Type: Spontaneous
  Country: BR (occurrence: BR)
  Receive Date: 20160916
  Receipt Date: 20160916
  Transmission Date: 20161109
  Serious: Yes (Hospitalization, Other)
  Sender: FDA-Public Use
  Company Number: BR-ALEXION PHARMACEUTICALS INC-A201606827

PATIENT
  Age: 29 Year
  Sex: Female

DRUGS (5)
  1. SOLIRIS [Suspect]
     Active Substance: ECULIZUMAB
     Dosage: 900 MG, Q2W
     Route: 042
  2. PREDNISONE. [Concomitant]
     Active Substance: PREDNISONE
     Indication: APLASIA
     Dosage: UNK
     Route: 048
  3. CLEXANE [Concomitant]
     Active Substance: ENOXAPARIN SODIUM
     Indication: ANTICOAGULANT THERAPY
     Dosage: UNK
     Route: 058
  4. PEN V                              /00001801/ [Concomitant]
     Indication: ANTIBIOTIC PROPHYLAXIS
     Dosage: UNK
     Route: 048
  5. SOLIRIS [Suspect]
     Active Substance: ECULIZUMAB
     Indication: PAROXYSMAL NOCTURNAL HAEMOGLOBINURIA
     Dosage: 600 MG, FOR FOUR WEEKS
     Route: 042
     Dates: start: 20141105, end: 20141226

REACTIONS (7)
  - Condition aggravated [Recovering/Resolving]
  - Ocular icterus [Unknown]
  - Haemoglobinuria [Unknown]
  - Pain in extremity [Recovering/Resolving]
  - Deep vein thrombosis [Recovering/Resolving]
  - Pruritus [Unknown]
  - Haemolysis [Unknown]

NARRATIVE: CASE EVENT DATE: 20160523
